FAERS Safety Report 20596698 (Version 1)
Quarter: 2022Q1

REPORT INFORMATION
  Report Type: Spontaneous
  Country: JP (occurrence: JP)
  Receive Date: 20220315
  Receipt Date: 20220315
  Transmission Date: 20220424
  Serious: Yes (Other)
  Sender: FDA-Public Use
  Company Number: JP-BRISTOL-MYERS SQUIBB COMPANY-BMS-2022-038855

PATIENT
  Age: 55 Year
  Sex: Female
  Weight: 39.8 kg

DRUGS (7)
  1. YERVOY [Suspect]
     Active Substance: IPILIMUMAB
     Indication: Mesothelioma malignant
     Dosage: 1 MILLIGRAM/KILOGRAM
     Route: 041
     Dates: start: 20220201
  2. OPDIVO [Suspect]
     Active Substance: NIVOLUMAB
     Indication: Mesothelioma malignant
     Dosage: 360 MILLIGRAM
     Route: 041
     Dates: start: 20220201
  3. TAPENTADOL HYDROCHLORIDE [Concomitant]
     Active Substance: TAPENTADOL HYDROCHLORIDE
     Indication: Product used for unknown indication
     Dosage: UNK
     Route: 065
  4. OXYCODONE HYDROCHLORIDE [Concomitant]
     Active Substance: OXYCODONE HYDROCHLORIDE
     Indication: Product used for unknown indication
     Dosage: UNK
     Route: 065
  5. NAPROXEN [Concomitant]
     Active Substance: NAPROXEN
     Indication: Product used for unknown indication
     Dosage: UNK
     Route: 065
  6. LANSOPRAZOLE [Concomitant]
     Active Substance: LANSOPRAZOLE
     Indication: Product used for unknown indication
     Dosage: UNK
     Route: 065
  7. SODIUM CHLORIDE [Concomitant]
     Active Substance: SODIUM CHLORIDE
     Indication: Product used for unknown indication
     Dosage: 3 GRAM DAILY
     Route: 065

REACTIONS (2)
  - Immune-mediated uveitis [Recovering/Resolving]
  - Immune-mediated dermatitis [Recovering/Resolving]

NARRATIVE: CASE EVENT DATE: 20220210
